FAERS Safety Report 19624179 (Version 1)
Quarter: 2021Q3

REPORT INFORMATION
  Report Type: Spontaneous
  Country: US (occurrence: US)
  Receive Date: 20210729
  Receipt Date: 20210729
  Transmission Date: 20211014
  Serious: Yes (Death, Other)
  Sender: FDA-Public Use
  Company Number: US-SA-2021SA249609

PATIENT
  Age: 48 Year
  Sex: Male

DRUGS (1)
  1. ZANTAC [Suspect]
     Active Substance: RANITIDINE HYDROCHLORIDE
     Indication: HYPERCHLORHYDRIA
     Dosage: UNK UNK, QD
     Dates: start: 199501, end: 201901

REACTIONS (4)
  - Pancreatic carcinoma [Fatal]
  - Neoplasm malignant [Not Recovered/Not Resolved]
  - Bladder cancer [Fatal]
  - Renal cancer [Fatal]

NARRATIVE: CASE EVENT DATE: 20170101
